FAERS Safety Report 7506680-6 (Version None)
Quarter: 2011Q2

REPORT INFORMATION
  Report Type: 
  Country: None (occurrence: None)
  Receive Date: 20110412
  Receipt Date: 20101221
  Transmission Date: 20111010
  Serious: Yes (Other)
  Sender: FDA-Public Use
  Company Number: 2010027056

PATIENT
  Sex: Male

DRUGS (1)
  1. HIZENTRA [Suspect]
     Indication: IMMUNODEFICIENCY COMMON VARIABLE
     Dosage: 13.2 G 1X/WEEK, INFUSION RATE 65 ML/120 MINUTES SUBCUTANEOUS
     Route: 058
     Dates: start: 20101001

REACTIONS (1)
  - ARTHRALGIA [None]
